FAERS Safety Report 20001410 (Version 1)
Quarter: 2021Q4

REPORT INFORMATION
  Report Type: Spontaneous
  Country: US (occurrence: US)
  Receive Date: 20211027
  Receipt Date: 20211027
  Transmission Date: 20220303
  Serious: Yes (Hospitalization)
  Sender: FDA-Public Use
  Company Number: None

PATIENT
  Age: 22 Year
  Sex: Female
  Weight: 134.7 kg

DRUGS (5)
  1. ONCASPAR [Suspect]
     Active Substance: PEGASPARGASE
  2. METHOTREXATE [Suspect]
     Active Substance: METHOTREXATE
  3. VINCRISTINE SULFATE [Suspect]
     Active Substance: VINCRISTINE SULFATE
  4. CYCLOPHOSPHAMIDE [Suspect]
     Active Substance: CYCLOPHOSPHAMIDE
  5. CYTARABINE [Suspect]
     Active Substance: CYTARABINE

REACTIONS (8)
  - Abdominal pain [None]
  - Nausea [None]
  - Vomiting [None]
  - Hypophagia [None]
  - Pancreatitis [None]
  - Duodenitis [None]
  - Duodenal ulcer [None]
  - Therapy interrupted [None]

NARRATIVE: CASE EVENT DATE: 20211013
